FAERS Safety Report 22065978 (Version 1)
Quarter: 2023Q1

REPORT INFORMATION
  Report Type: Spontaneous
  Country: NO (occurrence: NO)
  Receive Date: 20230306
  Receipt Date: 20230306
  Transmission Date: 20230417
  Serious: Yes (Hospitalization)
  Sender: FDA-Public Use
  Company Number: NO-ELI_LILLY_AND_COMPANY-NO202302012723

PATIENT
  Age: 27 Year
  Sex: Female
  Weight: 62 kg

DRUGS (7)
  1. EMGALITY [Suspect]
     Active Substance: GALCANEZUMAB-GNLM
     Indication: Migraine
     Dosage: 240 MG, SINGLE
     Route: 065
     Dates: start: 20220720, end: 20220720
  2. IRON [Concomitant]
     Active Substance: IRON
     Indication: Product used for unknown indication
  3. AERIUS (DESLORATADINE) [Concomitant]
     Active Substance: DESLORATADINE
     Indication: Hypersensitivity
     Dosage: 1 DOSAGE FORM, DAILY
     Dates: start: 2015
  4. CHOLECALCIFEROL [Concomitant]
     Active Substance: CHOLECALCIFEROL
     Indication: Product used for unknown indication
  5. MAGNESIUM [Concomitant]
     Active Substance: MAGNESIUM
     Indication: Product used for unknown indication
  6. TRIOBE [CYANOCOBALAMIN;FOLIC ACID;PYRIDOXINE] [Concomitant]
     Indication: Product used for unknown indication
  7. ORALCON [ETHINYLESTRADIOL;LEVONORGESTREL] [Concomitant]
     Indication: Contraception
     Dosage: 1 DOSAGE FORM
     Dates: start: 202210

REACTIONS (4)
  - Visual impairment [Unknown]
  - Aura [Unknown]
  - Migraine [Unknown]
  - Bedridden [Unknown]

NARRATIVE: CASE EVENT DATE: 20220722
